FAERS Safety Report 21937825 (Version 1)
Quarter: 2023Q1

REPORT INFORMATION
  Report Type: Report from Study
  Country: US (occurrence: US)
  Receive Date: 20230201
  Receipt Date: 20230201
  Transmission Date: 20230418
  Serious: Yes (Hospitalization, Other)
  Sender: FDA-Public Use
  Company Number: US-BoehringerIngelheim-2022-BI-210032

PATIENT
  Age: 83 Year
  Sex: Female

DRUGS (2)
  1. OFEV [Suspect]
     Active Substance: NINTEDANIB
     Indication: Idiopathic pulmonary fibrosis
     Route: 048
     Dates: start: 20220530
  2. OFEV [Suspect]
     Active Substance: NINTEDANIB
     Indication: Pulmonary fibrosis
     Route: 048
     Dates: start: 202206

REACTIONS (7)
  - Large intestinal haemorrhage [Recovered/Resolved]
  - Haemorrhoidal haemorrhage [Recovered/Resolved]
  - Seizure [Recovered/Resolved]
  - Rectal haemorrhage [Recovered/Resolved]
  - Rectal haemorrhage [Unknown]
  - Seizure [Not Recovered/Not Resolved]
  - Diarrhoea [Unknown]

NARRATIVE: CASE EVENT DATE: 20221229
